FAERS Safety Report 11070215 (Version 1)
Quarter: 2015Q2

REPORT INFORMATION
  Report Type: Spontaneous
  Country: JP (occurrence: JP)
  Receive Date: 20150427
  Receipt Date: 20150427
  Transmission Date: 20150821
  Serious: Yes (Life-Threatening, Hospitalization)
  Sender: FDA-Public Use
  Company Number: JP-BRACCO-008973

PATIENT
  Age: 81 Year
  Sex: Male
  Weight: 55 kg

DRUGS (4)
  1. ATELEC [Concomitant]
     Active Substance: CILNIDIPINE
     Indication: HYPERTENSION
     Dates: start: 20110131
  2. EPADEL [Concomitant]
     Active Substance: ICOSAPENT
     Indication: LIPIDS ABNORMAL
     Dates: start: 20110131
  3. CARFIN [Concomitant]
     Indication: THROMBOSIS PROPHYLAXIS
     Dates: start: 20110131
  4. IOPAMIRON [Suspect]
     Active Substance: IOPAMIDOL
     Indication: COMPUTERISED TOMOGRAM
     Dosage: 4 ML/SEC FOR 20 SECONDS
     Route: 042
     Dates: start: 20150307, end: 20150307

REACTIONS (5)
  - Cardio-respiratory arrest [Recovered/Resolved]
  - Ventricular fibrillation [Recovering/Resolving]
  - Atrial fibrillation [Unknown]
  - Anaphylactic shock [Recovering/Resolving]
  - Cardiomegaly [Unknown]

NARRATIVE: CASE EVENT DATE: 20150307
